FAERS Safety Report 19842058 (Version 1)
Quarter: 2021Q3

REPORT INFORMATION
  Report Type: Spontaneous
  Country: US (occurrence: US)
  Receive Date: 20210916
  Receipt Date: 20210916
  Transmission Date: 20211014
  Serious: Yes (Hospitalization)
  Sender: FDA-Public Use
  Company Number: US-AMGEN-USASP2021139889

PATIENT
  Age: 78 Year
  Sex: Female

DRUGS (3)
  1. PROLIA [Suspect]
     Active Substance: DENOSUMAB
     Indication: OSTEOPOROSIS
     Dosage: 60 MILLIGRAM, Q6MO
     Route: 065
  2. VITAMIN D [ERGOCALCIFEROL] [Concomitant]
     Active Substance: ERGOCALCIFEROL
  3. CALCIUM [Concomitant]
     Active Substance: CALCIUM

REACTIONS (7)
  - Fall [Unknown]
  - Pain [Unknown]
  - Vertigo [Not Recovered/Not Resolved]
  - Adverse reaction [Unknown]
  - Pain in extremity [Unknown]
  - Time perception altered [Unknown]
  - Memory impairment [Unknown]

NARRATIVE: CASE EVENT DATE: 201909
